FAERS Safety Report 23880890 (Version 1)
Quarter: 2024Q2

REPORT INFORMATION
  Report Type: Spontaneous
  Country: US (occurrence: US)
  Receive Date: 20240521
  Receipt Date: 20240521
  Transmission Date: 20240716
  Serious: Yes (Hospitalization, Other)
  Sender: FDA-Public Use
  Company Number: US-NOVOPROD-1106876

PATIENT
  Age: 76 Year
  Sex: Male

DRUGS (6)
  1. NOVOLOG [Suspect]
     Active Substance: INSULIN ASPART
     Indication: Product used for unknown indication
     Dosage: 12 IU, QD
     Route: 058
     Dates: start: 2018
  2. NOVOLOG [Suspect]
     Active Substance: INSULIN ASPART
     Dosage: 12 UNITS PER PLUS 4 UNITS
     Route: 058
  3. NOVOLOG [Suspect]
     Active Substance: INSULIN ASPART
     Dosage: 25 IU, QD
     Dates: start: 2018
  4. TRESIBA [Concomitant]
     Active Substance: INSULIN DEGLUDEC
     Dosage: 20 UNITS PER DAY PLUS 4
     Route: 058
  5. TRESIBA [Concomitant]
     Active Substance: INSULIN DEGLUDEC
     Dosage: 20 IU, QD
     Route: 058
     Dates: start: 2020
  6. TRESIBA [Concomitant]
     Active Substance: INSULIN DEGLUDEC
     Indication: Product used for unknown indication
     Dosage: 8-14 UNITS PER DAY
     Route: 058
     Dates: start: 2020

REACTIONS (7)
  - Vertigo [Unknown]
  - Haemorrhage urinary tract [Unknown]
  - Eye pain [Unknown]
  - Myalgia [Unknown]
  - Blood glucose increased [Not Recovered/Not Resolved]
  - Therapeutic product effect decreased [Not Recovered/Not Resolved]
  - Product quality issue [Not Recovered/Not Resolved]

NARRATIVE: CASE EVENT DATE: 20230801
